FAERS Safety Report 10596890 (Version 2)
Quarter: 2014Q4

REPORT INFORMATION
  Report Type: Spontaneous
  Country: US (occurrence: US)
  Receive Date: 20141120
  Receipt Date: 20141120
  Transmission Date: 20150529
  Serious: No
  Sender: FDA-Public Use
  Company Number: US-GLAXOSMITHKLINE-A1090318A

PATIENT

DRUGS (3)
  1. PROMACTA [Suspect]
     Active Substance: ELTROMBOPAG OLAMINE
     Dosage: 25 MG, QOD
     Route: 048
  2. PROMACTA [Suspect]
     Active Substance: ELTROMBOPAG OLAMINE
     Dosage: UNK, U
  3. PROMACTA [Suspect]
     Active Substance: ELTROMBOPAG OLAMINE
     Indication: THROMBOCYTOPENIA
     Dosage: 25 MG, Z
     Route: 048
     Dates: start: 20140213

REACTIONS (6)
  - Muscle spasms [Unknown]
  - Fluid retention [Unknown]
  - Dizziness [Unknown]
  - Amnesia [Unknown]
  - Pain in extremity [Unknown]
  - Confusional state [Unknown]

NARRATIVE: CASE EVENT DATE: 20140822
